FAERS Safety Report 23420510 (Version 2)
Quarter: 2024Q1

REPORT INFORMATION
  Report Type: Spontaneous
  Country: JP (occurrence: JP)
  Receive Date: 20240119
  Receipt Date: 20240123
  Transmission Date: 20240410
  Serious: Yes (Hospitalization, Other)
  Sender: FDA-Public Use
  Company Number: JP-AMGEN-JPNSP2024009132

PATIENT
  Sex: Female

DRUGS (1)
  1. EVENITY [Suspect]
     Active Substance: ROMOSOZUMAB-AQQG
     Indication: Product used for unknown indication
     Dosage: 210 MILLIGRAM
     Route: 058

REACTIONS (7)
  - Arrhythmia [Unknown]
  - Drug eruption [Unknown]
  - Dyspnoea [Recovering/Resolving]
  - Pharyngeal swelling [Unknown]
  - Stomatitis [Unknown]
  - Odynophagia [Unknown]
  - Tachycardia paroxysmal [Unknown]
